FAERS Safety Report 9620725 (Version 1)
Quarter: 2013Q4

REPORT INFORMATION
  Report Type: Spontaneous
  Country: US (occurrence: US)
  Receive Date: 20131015
  Receipt Date: 20131015
  Transmission Date: 20140711
  Serious: Yes (Other)
  Sender: FDA-Public Use
  Company Number: US-BIOGENIDEC-2013BI097877

PATIENT
  Age: 33 Year
  Sex: Male

DRUGS (1)
  1. AVONEX [Suspect]
     Indication: MULTIPLE SCLEROSIS
     Route: 030
     Dates: start: 20040921, end: 20050329

REACTIONS (10)
  - Convulsion [Recovered/Resolved]
  - Feeling cold [Recovered/Resolved]
  - Sensory disturbance [Recovered/Resolved]
  - Memory impairment [Not Recovered/Not Resolved]
  - Fall [Recovered/Resolved]
  - Laceration [Recovered/Resolved]
  - Distractibility [Not Recovered/Not Resolved]
  - Loss of consciousness [Unknown]
  - Injury [Unknown]
  - Influenza like illness [Recovered/Resolved]
